FAERS Safety Report 6870910-4 (Version None)
Quarter: 2010Q3

REPORT INFORMATION
  Report Type: 
  Country: None (occurrence: None)
  Receive Date: 20100723
  Receipt Date: 20100712
  Transmission Date: 20110219
  Serious: Yes (Other)
  Sender: FDA-Public Use
  Company Number: PHHY2010JP39778

PATIENT
  Age: 14 Year
  Sex: Female

DRUGS (11)
  1. NEORAL [Suspect]
     Indication: FOCAL SEGMENTAL GLOMERULOSCLEROSIS
     Dosage: 140 MG DAILY
     Route: 048
     Dates: start: 20090610, end: 20090629
  2. NEORAL [Suspect]
     Indication: NEPHROTIC SYNDROME
  3. PREDNISOLONE [Concomitant]
     Indication: FOCAL SEGMENTAL GLOMERULOSCLEROSIS
     Dosage: 60 MG
     Dates: start: 20090508, end: 20090612
  4. PREDNISOLONE [Concomitant]
     Dosage: 40MG
     Dates: start: 20090508, end: 20090612
  5. MIDAZOLAM HCL [Concomitant]
  6. GLYCEROL [Concomitant]
  7. NICARDIPINE HYDROCHLORIDE [Concomitant]
  8. DIAZEPAM [Concomitant]
  9. CYCLOPHOSPHAMIDE [Concomitant]
  10. ALBUMIN (HUMAN) [Concomitant]
  11. LASIX [Concomitant]

REACTIONS (8)
  - CONVULSION [None]
  - GRAND MAL CONVULSION [None]
  - HAEMODIALYSIS [None]
  - HEADACHE [None]
  - HYPERTENSION [None]
  - OEDEMA [None]
  - PURULENT DISCHARGE [None]
  - REVERSIBLE POSTERIOR LEUKOENCEPHALOPATHY SYNDROME [None]
